FAERS Safety Report 16074522 (Version 2)
Quarter: 2019Q2

REPORT INFORMATION
  Report Type: Spontaneous
  Country: FR (occurrence: FR)
  Receive Date: 20190314
  Receipt Date: 20190510
  Transmission Date: 20190711
  Serious: Yes (Disabling)
  Sender: FDA-Public Use
  Company Number: FR-009507513-1903FRA003597

PATIENT
  Age: 78 Year
  Sex: Male
  Weight: 80 kg

DRUGS (11)
  1. MODOPAR [Suspect]
     Active Substance: BENSERAZIDE HYDROCHLORIDE\LEVODOPA
     Indication: PARKINSON^S DISEASE
     Dosage: IF AFTER 8 DAYS, STILL NO STABILITY
     Route: 048
     Dates: start: 2019, end: 2019
  2. MODOPAR [Concomitant]
     Active Substance: BENSERAZIDE HYDROCHLORIDE\LEVODOPA
     Indication: PARKINSON^S DISEASE
     Dosage: 1 CAPSULE AT 09:00, 18:00 AND 22:30
     Route: 048
     Dates: start: 201705
  3. SINEMET [Suspect]
     Active Substance: CARBIDOPA\LEVODOPA
     Dosage: UNK
     Route: 048
     Dates: start: 2013
  4. SINEMET LP [Concomitant]
     Active Substance: CARBIDOPA\LEVODOPA
     Indication: PARKINSON^S DISEASE
     Dosage: 1 DOSAGE FORM AT NOON AND ONE AT 19:30; STRENGTH REPORTED: 200/50
     Dates: start: 20160926
  5. BUSPIRONE HYDROCHLORIDE. [Concomitant]
     Active Substance: BUSPIRONE HYDROCHLORIDE
     Indication: ANXIETY
     Dosage: 2/DAY
     Dates: start: 201806
  6. SINEMET [Suspect]
     Active Substance: CARBIDOPA\LEVODOPA
     Dosage: UNK
     Route: 048
     Dates: start: 2019
  7. SINEMET [Suspect]
     Active Substance: CARBIDOPA\LEVODOPA
     Dosage: UNK
     Route: 048
     Dates: start: 2014, end: 20190212
  8. MODOPAR [Concomitant]
     Active Substance: BENSERAZIDE HYDROCHLORIDE\LEVODOPA
     Indication: PARKINSON^S DISEASE
     Dosage: FORMULATION REPORTED TABLET; 1 CAPSULE AT 07:00, ONE AT 09:00 AND ONE AT 18:00
     Route: 048
     Dates: start: 201709
  9. MODOPAR [Suspect]
     Active Substance: BENSERAZIDE HYDROCHLORIDE\LEVODOPA
     Indication: PARKINSON^S DISEASE
     Dosage: 1 CAPSULE AT 07:00 AND 1 CAPSULE AT 16:00
     Route: 048
     Dates: start: 20190212, end: 2019
  10. FLECAINE [Concomitant]
     Active Substance: FLECAINIDE
     Indication: ARRHYTHMIA
     Dosage: 1 CAPSULE, IN THE MORNING
     Route: 048
  11. SINEMET [Suspect]
     Active Substance: CARBIDOPA\LEVODOPA
     Dosage: UNK
     Route: 048
     Dates: start: 2013

REACTIONS (5)
  - Gait inability [Recovering/Resolving]
  - Musculoskeletal stiffness [Recovering/Resolving]
  - Quality of life decreased [Recovering/Resolving]
  - Somnolence [Recovering/Resolving]
  - Product supply issue [Recovered/Resolved]

NARRATIVE: CASE EVENT DATE: 20190212
